FAERS Safety Report 9458163 (Version 1)
Quarter: 2013Q3

REPORT INFORMATION
  Report Type: Spontaneous
  Country: US (occurrence: None)
  Receive Date: 20130812
  Receipt Date: 20130812
  Transmission Date: 20140515
  Serious: No
  Sender: FDA-Public Use
  Company Number: None

PATIENT
  Sex: Female
  Weight: 82.56 kg

DRUGS (1)
  1. CIPROFLOXACIN HCL [Suspect]
     Indication: BLOOD URINE PRESENT
     Dosage: RX 5190176
     Dates: start: 20130614, end: 20130616

REACTIONS (1)
  - Pain in extremity [None]
